FAERS Safety Report 11300764 (Version 1)
Quarter: 2015Q3

REPORT INFORMATION
  Report Type: Spontaneous
  Country: US (occurrence: US)
  Receive Date: 20150722
  Receipt Date: 20150722
  Transmission Date: 20151125
  Serious: Yes (Hospitalization)
  Sender: FDA-Public Use
  Company Number: US-ELI_LILLY_AND_COMPANY-US201403003401

PATIENT
  Sex: Male

DRUGS (5)
  1. BABY ASPIRIN [Suspect]
     Active Substance: ASPIRIN
     Dosage: UNK, UNKNOWN
     Route: 065
  2. EFFIENT [Suspect]
     Active Substance: PRASUGREL HYDROCHLORIDE
     Indication: STENT PLACEMENT
     Dosage: 10 MG, QD
  3. EFFIENT [Suspect]
     Active Substance: PRASUGREL HYDROCHLORIDE
     Dosage: 7.5 MG, UNKNOWN
     Route: 065
  4. EFFIENT [Suspect]
     Active Substance: PRASUGREL HYDROCHLORIDE
     Dosage: 5 MG, UNKNOWN
     Route: 065
     Dates: start: 201211
  5. EFFIENT [Suspect]
     Active Substance: PRASUGREL HYDROCHLORIDE
     Dosage: 5 MG, QD
     Route: 065
     Dates: start: 201211

REACTIONS (8)
  - Dizziness [Unknown]
  - Drug ineffective [Unknown]
  - Heart rate increased [Unknown]
  - Chest pain [Unknown]
  - Tinnitus [Unknown]
  - Haemorrhage [Unknown]
  - Nasal congestion [Unknown]
  - Dyspnoea [Unknown]
